FAERS Safety Report 9176647 (Version 3)
Quarter: 2013Q2

REPORT INFORMATION
  Report Type: Report from Study
  Country: US (occurrence: US)
  Receive Date: 20130321
  Receipt Date: 20130403
  Transmission Date: 20140414
  Serious: Yes (Hospitalization)
  Sender: FDA-Public Use
  Company Number: US-JNJFOC-20130310019

PATIENT
  Age: 15 Year
  Sex: Female
  Weight: 41.3 kg

DRUGS (1)
  1. REMICADE [Suspect]
     Indication: COLITIS ULCERATIVE
     Route: 042
     Dates: start: 20081105

REACTIONS (2)
  - Pancreatitis [Recovered/Resolved]
  - Colitis ulcerative [Recovered/Resolved]
